FAERS Safety Report 14175776 (Version 1)
Quarter: 2017Q4

REPORT INFORMATION
  Report Type: Spontaneous
  Country: US (occurrence: US)
  Receive Date: 20171109
  Receipt Date: 20171109
  Transmission Date: 20180321
  Serious: Yes (Death, Other)
  Sender: FDA-Public Use
  Company Number: US-TEVA-823052USA

PATIENT
  Sex: Male

DRUGS (3)
  1. BUPRENORPHINE. [Suspect]
     Active Substance: BUPRENORPHINE
     Route: 060
  2. COCAINE [Suspect]
     Active Substance: COCAINE
     Route: 065
  3. ALCOHOL. [Suspect]
     Active Substance: ALCOHOL
     Route: 065

REACTIONS (4)
  - Toxicity to various agents [Fatal]
  - Alcohol abuse [Fatal]
  - Drug abuse [Fatal]
  - Death [Fatal]
